FAERS Safety Report 7214579-8 (Version None)
Quarter: 2011Q1

REPORT INFORMATION
  Report Type: 
  Country: None (occurrence: None)
  Receive Date: 20110107
  Receipt Date: 20110106
  Transmission Date: 20110831
  Serious: Yes (Other)
  Sender: FDA-Public Use
  Company Number: JP-PFIZER INC-2011004109

PATIENT
  Age: 60 Year
  Sex: Male

DRUGS (2)
  1. LYRICA [Suspect]
     Indication: PAIN IN EXTREMITY
     Dosage: 75 MG, 2X/DAY
     Route: 048
     Dates: start: 20101111, end: 20101124
  2. LYRICA [Suspect]
     Dosage: 75 MG, 3X/DAY
     Route: 048
     Dates: start: 20101125

REACTIONS (3)
  - TRANSIENT ISCHAEMIC ATTACK [None]
  - DYSARTHRIA [None]
  - APHASIA [None]
